FAERS Safety Report 14453420 (Version 7)
Quarter: 2018Q2

REPORT INFORMATION
  Report Type: Report from Study
  Country: BE (occurrence: BE)
  Receive Date: 20180129
  Receipt Date: 20180529
  Transmission Date: 20180711
  Serious: Yes (Hospitalization)
  Sender: FDA-Public Use
  Company Number: PHHY2017BE144474

PATIENT
  Age: 75 Year
  Sex: Female
  Weight: 70 kg

DRUGS (14)
  1. ENTRESTO [Suspect]
     Active Substance: SACUBITRIL\VALSARTAN
     Indication: CARDIAC FAILURE CHRONIC
     Dosage: 50 MG (SACUBITRIL 24MG/VALSARTAN 26MG), QD
     Route: 048
     Dates: start: 20161222, end: 20170420
  2. BURINEX [Concomitant]
     Active Substance: BUMETANIDE
     Indication: CARDIAC FAILURE
     Dosage: 0.5 MG, QD
     Route: 065
     Dates: start: 2016, end: 20170929
  3. ENTRESTO [Suspect]
     Active Substance: SACUBITRIL\VALSARTAN
     Dosage: 100 MG (SACUBITRIL 49MG/VALSARTAN 51MG), BID
     Route: 048
     Dates: start: 20170506, end: 20170619
  4. ENTRESTO [Suspect]
     Active Substance: SACUBITRIL\VALSARTAN
     Dosage: 100 MG (SACUBITRIL 49MG/VALSARTAN 51MG), BID
     Route: 048
     Dates: start: 20170905, end: 20170908
  5. ENTRESTO [Suspect]
     Active Substance: SACUBITRIL\VALSARTAN
     Dosage: 50 MG (SACUBITRIL 24MG/VALSARTAN 26MG), BID
     Route: 048
     Dates: start: 20170620, end: 20170904
  6. ALDACTONE [Concomitant]
     Active Substance: SPIRONOLACTONE
     Indication: CARDIAC FAILURE
     Dosage: 25 MG, QD
     Route: 065
     Dates: start: 20170927
  7. ZOCOR [Concomitant]
     Active Substance: SIMVASTATIN
     Indication: CARDIAC FAILURE
     Dosage: 20 MG, QD
     Route: 065
     Dates: start: 2016
  8. NOBITEN [Concomitant]
     Active Substance: NEBIVOLOL
     Indication: CARDIAC FAILURE
     Dosage: 5 MG, QD
     Route: 065
     Dates: start: 2016
  9. ENTRESTO [Suspect]
     Active Substance: SACUBITRIL\VALSARTAN
     Indication: CARDIAC FAILURE
     Dosage: 50 MG (SACUBITRIL 24MG/VALSARTAN 26MG), BID
     Route: 048
     Dates: start: 20170421, end: 20170505
  10. ENTRESTO [Suspect]
     Active Substance: SACUBITRIL\VALSARTAN
     Dosage: 50 MG (SACUBITRIL 24MG/VALSARTAN 26MG), BID
     Route: 048
     Dates: start: 20170909, end: 20180224
  11. ENTRESTO [Suspect]
     Active Substance: SACUBITRIL\VALSARTAN
     Dosage: 1 DF (SACUBITRIL 24MG/VALSARTAN 26MG), QD
     Route: 048
     Dates: start: 20180226, end: 20180226
  12. ENTRESTO [Suspect]
     Active Substance: SACUBITRIL\VALSARTAN
     Dosage: 1 DF (SACUBITRIL 24MG/VALSARTAN 26MG), BID
     Route: 048
     Dates: start: 20180227
  13. ASAFLOW [Concomitant]
     Active Substance: ASPIRIN
     Indication: CARDIAC FAILURE
     Dosage: 80 MG, QD
     Route: 065
     Dates: start: 2003
  14. CORUNO [Concomitant]
     Active Substance: MOLSIDOMINE
     Indication: CARDIAC FAILURE
     Dosage: 16 MG, QD
     Route: 065
     Dates: start: 20160414

REACTIONS (19)
  - Cardiac failure [Recovering/Resolving]
  - Prescribed underdose [Unknown]
  - Pneumonia [Recovering/Resolving]
  - Hyponatraemia [Recovered/Resolved]
  - Nausea [Recovered/Resolved]
  - Hypotension [Recovered/Resolved]
  - Bronchitis [Recovered/Resolved]
  - Dyspnoea [Recovering/Resolving]
  - Blepharitis [Recovering/Resolving]
  - Inappropriate schedule of drug administration [Unknown]
  - Productive cough [Recovering/Resolving]
  - Headache [Recovered/Resolved]
  - Hyperkalaemia [Recovering/Resolving]
  - Chronic kidney disease [Not Recovered/Not Resolved]
  - Glomerular filtration rate decreased [Unknown]
  - Blood creatinine increased [Unknown]
  - Influenza [Recovered/Resolved]
  - Vomiting [Recovered/Resolved]
  - Productive cough [Recovered/Resolved]

NARRATIVE: CASE EVENT DATE: 20161222
